FAERS Safety Report 10587983 (Version 4)
Quarter: 2015Q2

REPORT INFORMATION
  Report Type: Report from Study
  Country: US (occurrence: US)
  Receive Date: 20141117
  Receipt Date: 20150522
  Transmission Date: 20150821
  Serious: Yes (Hospitalization, Other)
  Sender: FDA-Public Use
  Company Number: US-ARIAD PHARMACEUTICALS, INC-2014US004046

PATIENT

DRUGS (14)
  1. PONATINIB [Suspect]
     Active Substance: PONATINIB
     Dosage: 30 MG, QD
     Route: 048
     Dates: start: 20131021, end: 201311
  2. ALLOPURINOL. [Concomitant]
     Active Substance: ALLOPURINOL
     Indication: PROPHYLAXIS
     Dosage: UNK
     Dates: start: 201308
  3. LOVENOX [Concomitant]
     Active Substance: ENOXAPARIN SODIUM
     Indication: THROMBOSIS PROPHYLAXIS
  4. ELAVIL [Concomitant]
     Active Substance: AMITRIPTYLINE HYDROCHLORIDE
     Indication: PRODUCT USED FOR UNKNOWN INDICATION
     Dosage: 10 MG, UNK
     Route: 048
  5. CEFEPIME [Concomitant]
     Active Substance: CEFEPIME\CEFEPIME HYDROCHLORIDE
     Indication: PRODUCT USED FOR UNKNOWN INDICATION
     Dosage: UNK
     Dates: end: 20140326
  6. PONATINIB [Suspect]
     Active Substance: PONATINIB
     Indication: CHRONIC MYELOID LEUKAEMIA
     Dosage: 45 MG, QD
     Route: 048
     Dates: start: 20130606, end: 20130831
  7. VALCYTE [Concomitant]
     Active Substance: VALGANCICLOVIR HYDROCHLORIDE
     Indication: PRODUCT USED FOR UNKNOWN INDICATION
  8. VANCOMYCIN [Concomitant]
     Active Substance: VANCOMYCIN
     Indication: PRODUCT USED FOR UNKNOWN INDICATION
     Dosage: UNK
     Dates: end: 20140324
  9. VALTREX [Concomitant]
     Active Substance: VALACYCLOVIR HYDROCHLORIDE
     Indication: CYTOMEGALOVIRUS INFECTION
     Dosage: 2000 MG, QID
     Route: 048
  10. VANCOMYCIN [Concomitant]
     Active Substance: VANCOMYCIN
     Dosage: UNK
  11. MORPHINE [Concomitant]
     Active Substance: MORPHINE
     Indication: PAIN
     Dosage: UNK
     Dates: start: 201302
  12. PONATINIB [Suspect]
     Active Substance: PONATINIB
     Dosage: 15 MG, QD
     Route: 048
     Dates: start: 20130926
  13. FLAGYL [Concomitant]
     Active Substance: METRONIDAZOLE\METRONIDAZOLE HYDROCHLORIDE
     Indication: PRODUCT USED FOR UNKNOWN INDICATION
     Dosage: UNK
     Dates: end: 20140326
  14. DAPSONE. [Concomitant]
     Active Substance: DAPSONE
     Indication: PROPHYLAXIS
     Dosage: UNK
     Dates: start: 20120212

REACTIONS (5)
  - Neoplasm progression [Recovered/Resolved]
  - Pulmonary embolism [Recovered/Resolved]
  - Pleural effusion [Recovered/Resolved]
  - Small intestinal obstruction [Recovered/Resolved]
  - Pseudomonal bacteraemia [Recovered/Resolved]

NARRATIVE: CASE EVENT DATE: 201309
